FAERS Safety Report 17941858 (Version 5)
Quarter: 2020Q4

REPORT INFORMATION
  Report Type: Spontaneous
  Country: US (occurrence: US)
  Receive Date: 20200625
  Receipt Date: 20201005
  Transmission Date: 20210113
  Serious: Yes (Hospitalization)
  Sender: FDA-Public Use
  Company Number: US-SA-2020SA161189

PATIENT

DRUGS (30)
  1. DUPIXENT [Suspect]
     Active Substance: DUPILUMAB
     Indication: DERMATITIS ATOPIC
     Dosage: 600 MG, 1X
     Route: 058
     Dates: start: 20200605, end: 20200605
  2. DUPIXENT [Suspect]
     Active Substance: DUPILUMAB
     Dosage: 2 DF, QOW
     Route: 058
     Dates: start: 202006
  3. EPINEPHRINE. [Concomitant]
     Active Substance: EPINEPHRINE
  4. SPIRIVA [Concomitant]
     Active Substance: TIOTROPIUM BROMIDE MONOHYDRATE
  5. VITAMIN D3 [Concomitant]
     Active Substance: CHOLECALCIFEROL
  6. AZELASTINE. [Concomitant]
     Active Substance: AZELASTINE HYDROCHLORIDE
  7. DOXEPIN HCL [Concomitant]
     Active Substance: DOXEPIN HYDROCHLORIDE
  8. HYDROXYZINE HCL [Concomitant]
     Active Substance: HYDROXYZINE HYDROCHLORIDE
  9. DUPIXENT [Suspect]
     Active Substance: DUPILUMAB
     Dosage: 300 MG, QOW
     Route: 058
     Dates: start: 2020
  10. VENTOLIN [Concomitant]
     Active Substance: ALBUTEROL SULFATE
  11. BUDESONIDE. [Concomitant]
     Active Substance: BUDESONIDE
  12. HYDROCODONE/ACETAMINOPHEN [Concomitant]
     Active Substance: ACETAMINOPHEN\HYDROCODONE
  13. LORATADINE. [Concomitant]
     Active Substance: LORATADINE
  14. HYDROCORTISONE. [Concomitant]
     Active Substance: HYDROCORTISONE
  15. KETOROLAC [Concomitant]
     Active Substance: KETOROLAC TROMETHAMINE
  16. SYMBICORT [Concomitant]
     Active Substance: BUDESONIDE\FORMOTEROL FUMARATE DIHYDRATE
  17. ACYCLOVIR [ACICLOVIR] [Concomitant]
     Active Substance: ACYCLOVIR
  18. PAZEO [Concomitant]
     Active Substance: OLOPATADINE HYDROCHLORIDE
  19. ALBUTEROL [SALBUTAMOL] [Concomitant]
     Active Substance: ALBUTEROL
  20. CEPHALEXIN [CEFALEXIN] [Concomitant]
     Active Substance: CEPHALEXIN
  21. VITAMIN D [VITAMIN D NOS] [Concomitant]
     Active Substance: VITAMIN D NOS
  22. TEMAZEPAM. [Concomitant]
     Active Substance: TEMAZEPAM
  23. TOBRAMYCIN. [Concomitant]
     Active Substance: TOBRAMYCIN
  24. RANITIDINE. [Concomitant]
     Active Substance: RANITIDINE
  25. BANOPHEN [Concomitant]
     Active Substance: DIPHENHYDRAMINE HYDROCHLORIDE
  26. TRIAMCINOLONE [Concomitant]
     Active Substance: TRIAMCINOLONE
  27. IPRATROPIUM [Concomitant]
     Active Substance: IPRATROPIUM
  28. PREDNISONE. [Concomitant]
     Active Substance: PREDNISONE
  29. ALPRAZOLAM. [Concomitant]
     Active Substance: ALPRAZOLAM
  30. AMOXICILLIN. [Concomitant]
     Active Substance: AMOXICILLIN

REACTIONS (3)
  - Incorrect dose administered [Unknown]
  - Injection site pain [Not Recovered/Not Resolved]
  - Hormone level abnormal [Unknown]

NARRATIVE: CASE EVENT DATE: 202006
